FAERS Safety Report 17473368 (Version 1)
Quarter: 2020Q1

REPORT INFORMATION
  Report Type: Spontaneous
  Country: US (occurrence: US)
  Receive Date: 20200228
  Receipt Date: 20200228
  Transmission Date: 20200409
  Serious: No
  Sender: FDA-Public Use
  Company Number: US-JNJFOC-20200230032

PATIENT
  Age: 28 Year
  Sex: Male
  Weight: 59.02 kg

DRUGS (1)
  1. INVOKANA [Suspect]
     Active Substance: CANAGLIFLOZIN
     Indication: DIABETES MELLITUS
     Dosage: TABLET SPLIT IN HALF TAKEN TWICE DAILY
     Route: 048

REACTIONS (10)
  - Flushing [Unknown]
  - Malaise [Unknown]
  - Dizziness [Unknown]
  - Abdominal discomfort [Unknown]
  - Off label use [Unknown]
  - Disorientation [Unknown]
  - Abdominal pain upper [Unknown]
  - Wrong technique in product usage process [Unknown]
  - Product use issue [Unknown]
  - Vomiting [Unknown]

NARRATIVE: CASE EVENT DATE: 20200218
